FAERS Safety Report 20139788 (Version 1)
Quarter: 2021Q4

REPORT INFORMATION
  Report Type: Spontaneous
  Country: US (occurrence: US)
  Receive Date: 20211202
  Receipt Date: 20211202
  Transmission Date: 20220304
  Serious: No
  Sender: FDA-Public Use
  Company Number: US-AMGEN-USASP2021186498

PATIENT
  Age: 77 Year
  Sex: Female

DRUGS (2)
  1. PROLIA [Suspect]
     Active Substance: DENOSUMAB
     Indication: Osteoporosis postmenopausal
     Dosage: 60 MILLIGRAM, Q6MO
     Route: 065
     Dates: start: 2020
  2. COVID-19 VACCINE [Concomitant]
     Dosage: UNK

REACTIONS (5)
  - Endodontic procedure [Unknown]
  - Body height decreased [Unknown]
  - COVID-19 [Unknown]
  - Tooth fracture [Unknown]
  - Tooth infection [Unknown]

NARRATIVE: CASE EVENT DATE: 20200101
